FAERS Safety Report 9367256 (Version 1)
Quarter: 2013Q2

REPORT INFORMATION
  Report Type: Spontaneous
  Country: US (occurrence: US)
  Receive Date: 20130625
  Receipt Date: 20130625
  Transmission Date: 20140414
  Serious: No
  Sender: FDA-Public Use
  Company Number: US-ASTELLAS-2012US005988

PATIENT
  Sex: Female
  Weight: 93 kg

DRUGS (1)
  1. VESICARE [Suspect]
     Indication: HYPERTONIC BLADDER
     Dosage: 5 MG, UID/QD
     Route: 048
     Dates: start: 20120628, end: 20120703

REACTIONS (4)
  - Abdominal discomfort [Unknown]
  - Constipation [Unknown]
  - Headache [Unknown]
  - Nausea [Unknown]
